FAERS Safety Report 9517029 (Version 1)
Quarter: 2013Q3

REPORT INFORMATION
  Report Type: Spontaneous
  Country: US (occurrence: US)
  Receive Date: 20130911
  Receipt Date: 20130911
  Transmission Date: 20140515
  Serious: No
  Sender: FDA-Public Use
  Company Number: US-PFIZER INC-2013257417

PATIENT
  Age: 53 Year
  Sex: Female

DRUGS (1)
  1. INLYTA [Suspect]
     Dosage: 5 MG, UNK
     Dates: start: 20130814

REACTIONS (1)
  - Nausea [Unknown]
